FAERS Safety Report 24958771 (Version 1)
Quarter: 2025Q1

REPORT INFORMATION
  Report Type: Spontaneous
  Country: US (occurrence: US)
  Receive Date: 20250212
  Receipt Date: 20250212
  Transmission Date: 20250409
  Serious: No
  Sender: ALCON
  Company Number: US-ALCON LABORATORIES-ALC2024US002034

PATIENT
  Age: 60 Year
  Sex: Male

DRUGS (1)
  1. RHOPRESSA [Suspect]
     Active Substance: NETARSUDIL MESYLATE
     Indication: Product used for unknown indication
     Route: 047
     Dates: start: 202312

REACTIONS (2)
  - Product dose omission issue [Unknown]
  - Eye pain [Unknown]

NARRATIVE: CASE EVENT DATE: 20240403
